FAERS Safety Report 6691727-X (Version None)
Quarter: 2010Q2

REPORT INFORMATION
  Report Type: 
  Country: None (occurrence: None)
  Receive Date: 20100422
  Receipt Date: 20090318
  Transmission Date: 20101027
  Serious: No
  Sender: FDA-Public Use
  Company Number: US-ASTRAZENECA-2009UW07088

PATIENT
  Age: 81 Year
  Sex: Female
  Weight: 69.4 kg

DRUGS (14)
  1. TOPROL-XL [Suspect]
     Route: 048
  2. CRESTOR [Suspect]
     Route: 048
  3. SYNTHROID [Concomitant]
  4. VIT D [Concomitant]
  5. CALCIUM [Concomitant]
  6. NIASPAN [Concomitant]
  7. COZAAR [Concomitant]
  8. MAGNESIUM [Concomitant]
  9. POTASSIUM [Concomitant]
  10. ALEPURINOL [Concomitant]
  11. CLARITIN [Concomitant]
  12. NASACORT [Concomitant]
  13. SEROEVENT [Concomitant]
  14. FURESIDEMIDE [Concomitant]

REACTIONS (1)
  - MUSCLE SPASMS [None]
